FAERS Safety Report 25865819 (Version 2)
Quarter: 2025Q4

REPORT INFORMATION
  Report Type: Report from Study
  Country: CA (occurrence: CA)
  Receive Date: 20250930
  Receipt Date: 20251014
  Transmission Date: 20260118
  Serious: Yes (Hospitalization, Other)
  Sender: TAKEDA
  Company Number: CA-TAKEDA-2025TUS034041

PATIENT
  Age: 55 Year
  Sex: Male
  Weight: 50 kg

DRUGS (4)
  1. VEDOLIZUMAB [Suspect]
     Active Substance: VEDOLIZUMAB
     Indication: Crohn^s disease
     Dosage: 300 MILLIGRAM
  2. VEDOLIZUMAB [Suspect]
     Active Substance: VEDOLIZUMAB
     Dosage: 300 MILLIGRAM, Q4WEEKS
     Dates: start: 20250415
  3. VEDOLIZUMAB [Suspect]
     Active Substance: VEDOLIZUMAB
     Indication: Crohn^s disease
     Dosage: 108 MILLIGRAM, Q2WEEKS
     Dates: start: 20240710, end: 20250808
  4. PREDNISONE [Concomitant]
     Active Substance: PREDNISONE
     Dosage: UNK

REACTIONS (18)
  - Intestinal obstruction [Unknown]
  - Small intestinal stenosis [Unknown]
  - Injection site swelling [Unknown]
  - Injection site pain [Unknown]
  - Diarrhoea [Unknown]
  - Frequent bowel movements [Unknown]
  - Anal fistula [Unknown]
  - Pulmonary mass [Unknown]
  - Appetite disorder [Unknown]
  - Underweight [Unknown]
  - Lung disorder [Not Recovered/Not Resolved]
  - Fistula [Unknown]
  - Faeces soft [Unknown]
  - Off label use [Unknown]
  - Abdominal pain [Unknown]
  - Malaise [Unknown]
  - Arthralgia [Unknown]
  - Pyrexia [Unknown]

NARRATIVE: CASE EVENT DATE: 20250415
